FAERS Safety Report 6051472-0 (Version None)
Quarter: 2009Q1

REPORT INFORMATION
  Report Type: 
  Country: None (occurrence: None)
  Receive Date: 20090126
  Receipt Date: 20090116
  Transmission Date: 20090719
  Serious: Yes (Death, Hospitalization)
  Sender: FDA-Public Use
  Company Number: A0752304A

PATIENT
  Age: 41 Year
  Sex: Male
  Weight: 109.1 kg

DRUGS (8)
  1. ADVAIR DISKUS 100/50 [Suspect]
     Indication: ASTHMA
     Route: 055
  2. XOPENEX [Concomitant]
  3. LISINOPRIL [Concomitant]
  4. PROVENTIL [Concomitant]
  5. FLONASE [Concomitant]
  6. ATROVENT [Concomitant]
  7. ALBUTEROL [Concomitant]
  8. PREDNISONE TAB [Concomitant]

REACTIONS (12)
  - ASTHMA [None]
  - BRAIN DEATH [None]
  - BRAIN OEDEMA [None]
  - CARDIAC ARREST [None]
  - CEREBRAL ISCHAEMIA [None]
  - LOSS OF CONSCIOUSNESS [None]
  - PNEUMONIA [None]
  - PYREXIA [None]
  - RESPIRATORY ACIDOSIS [None]
  - RESPIRATORY ARREST [None]
  - STATUS ASTHMATICUS [None]
  - TREATMENT NONCOMPLIANCE [None]
